FAERS Safety Report 7403074-9 (Version None)
Quarter: 2011Q1

REPORT INFORMATION
  Report Type: 
  Country: None (occurrence: None)
  Receive Date: 20110331
  Receipt Date: 20110317
  Transmission Date: 20110831
  Serious: Yes (Other)
  Sender: FDA-Public Use
  Company Number: AUR-APL-2010-02002

PATIENT
  Age: 43 Year
  Sex: Female
  Weight: 124.2856 kg

DRUGS (23)
  1. CETIRIZINE TABLET [Suspect]
     Indication: HYPERSENSITIVITY
     Dosage: 10MG-DAILY-ORAL
     Route: 048
  2. BACLOFEN [Suspect]
     Indication: RESTLESS LEGS SYNDROME
     Dosage: 20MG-TID-ORAL
     Route: 048
  3. METHADONE [Suspect]
     Indication: PAIN
     Dosage: 10MG-5 TIMES DAILY-ORAL
     Route: 048
  4. FLUTICASONE SPRAY [Suspect]
     Indication: NASAL SEPTUM DEVIATION
     Dosage: NASAL
     Route: 045
     Dates: start: 20100101
  5. MIRALAX [Suspect]
     Indication: CONSTIPATION
     Dosage: 17GM-DAILY-ORAL
     Route: 048
  6. SIMVASTATIN [Suspect]
     Indication: BLOOD CHOLESTEROL
     Dosage: 40MG-DAILY-ORAL
     Route: 048
  7. PROVIGIL [Suspect]
     Indication: SLEEP APNOEA SYNDROME
     Dosage: 1.5 TABS-DAILY-ORAL
     Route: 048
  8. ASPIRIN [Suspect]
     Dosage: 81MG-DAILY-ORAL
     Route: 048
  9. OMEPRAZOLE [Suspect]
     Indication: GASTROOESOPHAGEAL REFLUX DISEASE
     Dosage: 40MG-DAILY-ORAL
     Route: 048
  10. LEVEMIR [Suspect]
     Indication: DIABETES MELLITUS
     Dosage: 47 UNITS QAM AND QPM-SUBQ
  11. FISH OIL [Suspect]
  12. MELOXICAM [Suspect]
     Indication: PAIN
     Dosage: 15MG-BID-ORAL
     Route: 048
  13. LYRICA [Suspect]
     Dosage: 150MG-QID
  14. CYMBALTA [Suspect]
     Indication: DEPRESSION
     Dosage: 60MG-BID-ORAL
     Route: 048
  15. PROPRANOLOL [Suspect]
     Indication: BLOOD PRESSURE
     Dosage: 20MG-BID-ORAL
     Route: 048
  16. LEVOTHYROXINE SODIUM [Suspect]
     Indication: THYROID DISORDER
     Dosage: 50MCG-DAILY-ORAL
     Route: 048
  17. LISINOPRIL [Suspect]
     Indication: BLOOD PRESSURE
     Dosage: 10 MG - DAILY - ORAL
     Route: 048
  18. LYRICA [Suspect]
     Dosage: 150-TID-ORAL
     Route: 048
  19. LIDODERM [Suspect]
     Indication: MYALGIA
     Dosage: 3 PATCHES DAILY (12HOURS ON/OFF)
  20. MULTI-VITAMIN [Suspect]
  21. VITAMIN E [Suspect]
  22. METHCARBAMOL [Suspect]
     Dosage: 500MG-BID-ORAL
     Route: 048
  23. TEGRETOL [Suspect]
     Indication: PERSONALITY DISORDER
     Dosage: 1 TAB QAM, 2 TABS QPM-ORAL
     Route: 048

REACTIONS (7)
  - ARTHRITIS [None]
  - MYALGIA [None]
  - DIABETIC NEUROPATHY [None]
  - CONVULSION [None]
  - FIBROMYALGIA [None]
  - NEURALGIA [None]
  - ARTHRALGIA [None]
